FAERS Safety Report 26008025 (Version 1)
Quarter: 2025Q4

REPORT INFORMATION
  Report Type: Spontaneous
  Country: US (occurrence: US)
  Receive Date: 20251106
  Receipt Date: 20251106
  Transmission Date: 20260118
  Serious: No
  Sender: SANOFI AVENTIS
  Company Number: US-SA-2025SA319346

PATIENT
  Age: 10 Year
  Sex: Male

DRUGS (2)
  1. ALPROLIX [Suspect]
     Active Substance: EFTRENONACOG ALFA
     Indication: Factor IX deficiency
     Dosage: 3000 U, PRN (DAILY AS NEEDED)
     Route: 042
  2. ALPROLIX [Suspect]
     Active Substance: EFTRENONACOG ALFA
     Indication: Factor IX deficiency
     Dosage: 3000 U, PRN (DAILY AS NEEDED)
     Route: 042

REACTIONS (5)
  - Joint injury [Unknown]
  - Joint swelling [Unknown]
  - Arthralgia [Unknown]
  - Joint effusion [Unknown]
  - Fall [Unknown]

NARRATIVE: CASE EVENT DATE: 20251010
